FAERS Safety Report 4915246-3 (Version None)
Quarter: 2006Q1

REPORT INFORMATION
  Report Type: 
  Country: None (occurrence: None)
  Receive Date: 20060216
  Receipt Date: 20060216
  Transmission Date: 20060701
  Serious: Yes (Hospitalization)
  Sender: FDA-Public Use
  Company Number: None

PATIENT
  Sex: Female
  Weight: 59.8748 kg

DRUGS (13)
  1. COUMADIN [Suspect]
     Indication: DEEP VEIN THROMBOSIS
     Dosage: 2 MG PO QHS PRIOR TO ADMISSION
     Route: 048
  2. MVI W/ MINERALS [Concomitant]
  3. VIT C [Concomitant]
  4. MOM [Concomitant]
  5. TYLENOL (CAPLET) [Concomitant]
  6. XANAX [Concomitant]
  7. INSULIN [Concomitant]
  8. NTG SL [Concomitant]
  9. CARDIZEM SA [Concomitant]
  10. NITROGLYCERIN [Concomitant]
  11. ALBUTEROL [Concomitant]
  12. ATROVENT [Concomitant]
  13. FLAGYL [Concomitant]

REACTIONS (2)
  - GASTROINTESTINAL HAEMORRHAGE [None]
  - LOSS OF CONSCIOUSNESS [None]
